FAERS Safety Report 11174110 (Version 1)
Quarter: 2015Q2

REPORT INFORMATION
  Report Type: Spontaneous
  Country: US (occurrence: US)
  Receive Date: 20150609
  Receipt Date: 20150609
  Transmission Date: 20150821
  Serious: Yes (Hospitalization, Other)
  Sender: FDA-Public Use
  Company Number: US-PFIZER INC-2015189976

PATIENT
  Age: 59 Year
  Sex: Female
  Weight: 104 kg

DRUGS (1)
  1. XANAX [Suspect]
     Active Substance: ALPRAZOLAM
     Indication: PANIC ATTACK
     Dosage: 0.5MG TABLET, ONE IN THE MORNING, ONE IN THE AFTERNOON, TWO BEFORE GO TO SLEEP
     Route: 048
     Dates: start: 201308

REACTIONS (2)
  - Dyspnoea [Unknown]
  - Drug dependence [Not Recovered/Not Resolved]
